FAERS Safety Report 22869020 (Version 2)
Quarter: 2023Q4

REPORT INFORMATION
  Report Type: Spontaneous
  Country: US (occurrence: US)
  Receive Date: 20230825
  Receipt Date: 20231004
  Transmission Date: 20240110
  Serious: Yes (Other)
  Sender: FDA-Public Use
  Company Number: US-009507513-2308USA008682

PATIENT
  Age: 92 Year
  Sex: Female
  Weight: 77.9 kg

DRUGS (17)
  1. KEYTRUDA [Suspect]
     Active Substance: PEMBROLIZUMAB
     Dosage: 200MG/EVERY 21 DAYS ONCE @ 216 ML/HR OVER 30 MINUTES, VOLUMEN: 108 ML
     Route: 042
     Dates: start: 20230823
  2. CIPROFLOXACIN [Concomitant]
     Active Substance: CIPROFLOXACIN
     Dosage: 250 MILLIGRAM, TWO TIMES DAILY
     Route: 048
  3. ZOFRAN [Concomitant]
     Active Substance: ONDANSETRON HYDROCHLORIDE
     Indication: Vomiting
     Dosage: 8 MILLIGRAM, PRN
     Route: 048
  4. COMPAZINE [Concomitant]
     Active Substance: PROCHLORPERAZINE MALEATE
     Indication: Vomiting
     Dosage: 10 MILLIGRAM, PRN
     Route: 048
  5. ROXICODONE [Concomitant]
     Active Substance: OXYCODONE HYDROCHLORIDE
     Indication: Pain
     Dosage: 5 MILLIGRAM, PRN
     Route: 048
  6. COSOPT [Concomitant]
     Active Substance: DORZOLAMIDE HYDROCHLORIDE\TIMOLOL MALEATE
     Dosage: CONCENTRATION: 22.3 - 6.8 MG/ML, 1 DROP BOTH EYES
  7. XALATAN [Concomitant]
     Active Substance: LATANOPROST
     Dosage: 1 DROP BOTH EYES EVERY EVENING
  8. VITAMIN D3 [Concomitant]
     Active Substance: CHOLECALCIFEROL
     Dosage: 1000 INTERNATIONAL UNIT, QD
  9. REQUIP [Concomitant]
     Active Substance: ROPINIROLE HYDROCHLORIDE
     Dosage: 0.25 MILLIGRAM, QD
  10. HYDROCHLOROTHIAZIDE\TRIAMTERENE [Concomitant]
     Active Substance: HYDROCHLOROTHIAZIDE\TRIAMTERENE
     Dosage: CONCENTRATION 37.5 - 25 MG, QD
     Route: 048
  11. VARICELLA-ZOSTER VIRUS STRAIN OKA/MERCK LIVE ANTIGEN [Concomitant]
     Active Substance: VARICELLA-ZOSTER VIRUS STRAIN OKA/MERCK LIVE ANTIGEN
     Dosage: 50 MCG/0.5 ML RECON SUSP
     Route: 030
  12. LOSARTAN [Concomitant]
     Active Substance: LOSARTAN
     Dosage: 25 MILLIGRAM, QD
     Route: 048
  13. HYDROCHLOROTIAZID [Concomitant]
     Dosage: 25 MILLIGRAM, QD
     Route: 048
  14. LEVOTHYROXINE [Concomitant]
     Active Substance: LEVOTHYROXINE
     Dosage: 25 MICROGRAM, QD
  15. 3 OMEGAS [Concomitant]
     Dosage: 1000 MILLIGRAM, QD
     Route: 048
  16. ATIVAN [Concomitant]
     Active Substance: LORAZEPAM
     Dosage: 0.5 MILLIGRAM
     Route: 048
  17. CHLORIDE SODIUM [Concomitant]
     Dosage: 100 MILLILITER
     Route: 042

REACTIONS (3)
  - Back pain [Recovered/Resolved]
  - Back pain [Recovering/Resolving]
  - Muscle spasms [Recovering/Resolving]

NARRATIVE: CASE EVENT DATE: 20230823
